FAERS Safety Report 7803968-6 (Version None)
Quarter: 2011Q4

REPORT INFORMATION
  Report Type: 
  Country: None (occurrence: None)
  Receive Date: 20111010
  Receipt Date: 20111006
  Transmission Date: 20120403
  Serious: No
  Sender: FDA-Public Use
  Company Number: US-PFIZER INC-2011239195

PATIENT
  Sex: Male
  Weight: 58.957 kg

DRUGS (4)
  1. ARTHROTEC [Suspect]
     Indication: RHEUMATOID ARTHRITIS
  2. TEMAZEPAM [Concomitant]
     Indication: SLEEP DISORDER
     Dosage: UNK
  3. VENLAFAXINE [Concomitant]
     Indication: DEPRESSION
     Dosage: 150 MG, UNK
     Route: 048
  4. ARTHROTEC [Suspect]
     Indication: OSTEOARTHRITIS
     Dosage: 75 MG, 2X/DAY
     Route: 048
     Dates: start: 20110901

REACTIONS (5)
  - FATIGUE [None]
  - VISION BLURRED [None]
  - ASTHENIA [None]
  - DIARRHOEA [None]
  - HORMONE LEVEL ABNORMAL [None]
